FAERS Safety Report 17762969 (Version 3)
Quarter: 2020Q3

REPORT INFORMATION
  Report Type: Report from Study
  Country: CZ (occurrence: CZ)
  Receive Date: 20200508
  Receipt Date: 20200810
  Transmission Date: 20201102
  Serious: Yes (Death)
  Sender: FDA-Public Use
  Company Number: CZ-PFIZER INC-2020178828

PATIENT
  Sex: Female
  Weight: 60 kg

DRUGS (2)
  1. GLASDEGIB [Suspect]
     Active Substance: GLASDEGIB
     Indication: ACUTE MYELOID LEUKAEMIA
     Dosage: ONCE DAILY CONTINUOUS
     Route: 048
     Dates: start: 20181217
  2. AZACITIDINE. [Suspect]
     Active Substance: AZACITIDINE
     Indication: ACUTE MYELOID LEUKAEMIA
     Dosage: 126 MG, CYCLIC (DAILY FOR 7 DAYS)
     Route: 058
     Dates: start: 20181217, end: 20200407

REACTIONS (1)
  - Death [Fatal]

NARRATIVE: CASE EVENT DATE: 20200411
